FAERS Safety Report 25314888 (Version 1)
Quarter: 2025Q2

REPORT INFORMATION
  Report Type: Spontaneous
  Country: US (occurrence: US)
  Receive Date: 20250514
  Receipt Date: 20250514
  Transmission Date: 20250716
  Serious: No
  Sender: BIOMARIN
  Company Number: US-BIOMARINAP-US-2025-165322

PATIENT

DRUGS (1)
  1. ROCTAVIAN [Suspect]
     Active Substance: VALOCTOCOGENE ROXAPARVOVEC-RVOX
     Indication: Factor VIII deficiency
     Route: 042
     Dates: start: 202412, end: 202412

REACTIONS (1)
  - CD4 lymphocytes increased [Unknown]
